FAERS Safety Report 10646655 (Version 2)
Quarter: 2015Q1

REPORT INFORMATION
  Report Type: Spontaneous
  Country: US (occurrence: US)
  Receive Date: 20141211
  Receipt Date: 20150115
  Transmission Date: 20150720
  Serious: Yes (Death)
  Sender: FDA-Public Use
  Company Number: US-PFIZER INC-2014338102

PATIENT
  Age: 64 Year
  Sex: Female

DRUGS (1)
  1. INLYTA [Suspect]
     Active Substance: AXITINIB
     Indication: NEOPLASM MALIGNANT
     Dosage: 3 MG, 2X/DAY (1 MG TAKE 3 TABLETS EVERY 12 HRS)

REACTIONS (2)
  - Neoplasm malignant [Fatal]
  - Disease progression [Fatal]

NARRATIVE: CASE EVENT DATE: 20141207
